FAERS Safety Report 5852891-5 (Version None)
Quarter: 2008Q3

REPORT INFORMATION
  Report Type: 
  Country: None (occurrence: None)
  Receive Date: 20080821
  Receipt Date: 20080812
  Transmission Date: 20090109
  Serious: Yes (Hospitalization)
  Sender: FDA-Public Use
  Company Number: PHHY2008US17924

PATIENT

DRUGS (3)
  1. BLINDED ERL 080A ERL+TAB [Suspect]
     Indication: IMMUNOSUPPRESSION
     Dosage: 1440 MG, QD
     Route: 048
     Dates: start: 20080102, end: 20080627
  2. BLINDED MYCOPHENOLATE MOFETIL COMP-MYC+ [Suspect]
     Indication: IMMUNOSUPPRESSION
     Dosage: 1440 MG, QD
     Route: 048
     Dates: start: 20080102, end: 20080627
  3. BLINDED NO TREATMENT RECEIVED NOMED [Suspect]
     Indication: IMMUNOSUPPRESSION
     Dosage: 1440 MG, QD
     Route: 048
     Dates: start: 20080102, end: 20080627

REACTIONS (10)
  - ABDOMINAL PAIN [None]
  - DECREASED APPETITE [None]
  - DIARRHOEA [None]
  - HEADACHE [None]
  - HYPOTENSION [None]
  - HYPOVOLAEMIA [None]
  - LEUKOPENIA [None]
  - RENAL FAILURE ACUTE [None]
  - UPPER RESPIRATORY TRACT INFECTION [None]
  - VOMITING [None]
